FAERS Safety Report 6100815-8 (Version None)
Quarter: 2009Q1

REPORT INFORMATION
  Report Type: 
  Country: None (occurrence: None)
  Receive Date: 20090303
  Receipt Date: 20090113
  Transmission Date: 20090719
  Serious: Yes (Hospitalization)
  Sender: FDA-Public Use
  Company Number: DE-GENENTECH-275833

PATIENT
  Sex: Female

DRUGS (10)
  1. BEVACIZUMAB [Suspect]
     Indication: ANAEMIA
     Dosage: 15 MG/KG, Q21D
     Route: 042
     Dates: start: 20080812, end: 20090105
  2. BEVACIZUMAB [Suspect]
     Indication: PROSTATE CANCER
  3. GEMCITABINE HCL [Suspect]
     Indication: ANAEMIA
     Dosage: 1250 MG, UNK
     Route: 042
     Dates: start: 20080812
  4. GEMCITABINE HCL [Suspect]
     Indication: PROSTATE CANCER
  5. CISPLATIN [Suspect]
     Indication: ANAEMIA
     Dosage: 40 MG, UNK
     Route: 042
     Dates: start: 20080812
  6. CISPLATIN [Suspect]
     Indication: PROSTATE CANCER
  7. HYDROCHLOROTHIAZIDE [Concomitant]
     Indication: DRUG USE FOR UNKNOWN INDICATION
     Dosage: UNK
     Dates: start: 19980101
  8. METFORMIN HCL [Concomitant]
     Indication: DRUG USE FOR UNKNOWN INDICATION
     Dosage: UNK
     Dates: start: 19980101
  9. ENALAPRIL [Concomitant]
     Indication: DRUG USE FOR UNKNOWN INDICATION
     Dosage: UNK
     Dates: start: 19980101
  10. ASPIRIN [Concomitant]
     Indication: DRUG USE FOR UNKNOWN INDICATION
     Dosage: UNK
     Dates: start: 19980101

REACTIONS (1)
  - CONFUSIONAL STATE [None]
